FAERS Safety Report 5632907-1 (Version None)
Quarter: 2008Q1

REPORT INFORMATION
  Report Type: 
  Country: None (occurrence: None)
  Receive Date: 20080221
  Receipt Date: 20080215
  Transmission Date: 20080703
  Serious: Yes (Hospitalization)
  Sender: FDA-Public Use
  Company Number: FR-BAXTER-2007BH009247

PATIENT
  Age: 9 Year
  Sex: Male

DRUGS (3)
  1. ADVATE [Suspect]
     Indication: FACTOR VIII DEFICIENCY
     Route: 042
     Dates: start: 20071119, end: 20071119
  2. ADVATE [Suspect]
     Indication: ARTHRALGIA
     Route: 042
     Dates: start: 20071119, end: 20071119
  3. CODEINE SUL TAB [Suspect]
     Indication: ARTHRALGIA
     Dosage: DOSE UNIT:UNKNOWN
     Route: 065
     Dates: start: 20071119

REACTIONS (5)
  - ASTHENIA [None]
  - LIMB INJURY [None]
  - LOSS OF CONSCIOUSNESS [None]
  - MALAISE [None]
  - VERTIGO [None]
